FAERS Safety Report 10934701 (Version 4)
Quarter: 2015Q3

REPORT INFORMATION
  Report Type: Spontaneous
  Country: US (occurrence: US)
  Receive Date: 20150320
  Receipt Date: 20150706
  Transmission Date: 20151125
  Serious: Yes (Hospitalization, Disabling, Other)
  Sender: FDA-Public Use
  Company Number: US-009507513-1109USA00997

PATIENT
  Sex: Female
  Weight: 92.97 kg

DRUGS (7)
  1. ALENDRONATE SODIUM. [Suspect]
     Active Substance: ALENDRONATE SODIUM
     Indication: OSTEOPENIA
  2. ALENDRONATE SODIUM. [Suspect]
     Active Substance: ALENDRONATE SODIUM
     Indication: OSTEOPOROSIS
     Dosage: 70 MG, QW
     Route: 048
     Dates: start: 20080508, end: 20091127
  3. ACTONEL [Suspect]
     Active Substance: RISEDRONATE SODIUM
     Indication: OSTEOPENIA
     Dosage: 5 MG, UNK
     Route: 048
     Dates: start: 200012, end: 200101
  4. FOSAMAX [Suspect]
     Active Substance: ALENDRONATE SODIUM
     Indication: OSTEOPENIA
     Dosage: 70 MG, UNK
     Route: 048
     Dates: start: 20010312, end: 20080121
  5. FOSAMAX [Suspect]
     Active Substance: ALENDRONATE SODIUM
     Indication: OSTEOPOROSIS
     Dosage: 10 MG, QW
     Route: 048
     Dates: start: 19971009, end: 19990824
  6. RISEDRONATE SODIUM. [Suspect]
     Active Substance: RISEDRONATE SODIUM
     Route: 048
     Dates: start: 199710, end: 200912
  7. ACTONEL [Suspect]
     Active Substance: RISEDRONATE SODIUM
     Indication: OSTEOPOROSIS
     Dosage: 5 MG, UNK
     Route: 048
     Dates: start: 200005, end: 200006

REACTIONS (36)
  - Femur fracture [Not Recovered/Not Resolved]
  - Osteoarthritis [Unknown]
  - Urticaria [Recovered/Resolved]
  - Urinary tract infection [Unknown]
  - Breast cyst [Unknown]
  - Spinal compression fracture [Unknown]
  - Insomnia [Unknown]
  - Viral infection [Unknown]
  - Muscle rupture [Unknown]
  - Fall [Unknown]
  - Dysphagia [Unknown]
  - Fall [Unknown]
  - Glucose tolerance impaired [Unknown]
  - Aortic valve incompetence [Unknown]
  - Low turnover osteopathy [Not Recovered/Not Resolved]
  - Renal failure [Unknown]
  - Hypersensitivity [Recovered/Resolved]
  - Rotator cuff syndrome [Unknown]
  - Varicose vein [Unknown]
  - Oedema peripheral [Unknown]
  - Aortic arteriosclerosis [Unknown]
  - Emphysema [Unknown]
  - Osteoporosis [Not Recovered/Not Resolved]
  - Mitral valve incompetence [Unknown]
  - Atrioventricular block first degree [Unknown]
  - Anaemia [Unknown]
  - Hilar lymphadenopathy [Unknown]
  - Myalgia [Recovered/Resolved]
  - Haematuria [Unknown]
  - Carpal tunnel syndrome [Unknown]
  - Synovial cyst [Unknown]
  - Hypercalcaemia [Unknown]
  - Spinal compression fracture [Unknown]
  - Acute kidney injury [Unknown]
  - Fractured sacrum [Unknown]
  - Peripheral venous disease [Unknown]

NARRATIVE: CASE EVENT DATE: 1999
